FAERS Safety Report 22013331 (Version 1)
Quarter: 2023Q1

REPORT INFORMATION
  Report Type: Spontaneous
  Country: US (occurrence: US)
  Receive Date: 20230220
  Receipt Date: 20230220
  Transmission Date: 20230417
  Serious: No
  Sender: FDA-Public Use
  Company Number: US-PFIZER INC-202300070719

PATIENT

DRUGS (1)
  1. INLYTA [Suspect]
     Active Substance: AXITINIB
     Indication: Bladder cancer
     Dosage: UNK

REACTIONS (3)
  - Off label use [Unknown]
  - Liver function test increased [Unknown]
  - Hypertension [Unknown]
